FAERS Safety Report 9173807 (Version 2)
Quarter: 2013Q2

REPORT INFORMATION
  Report Type: Spontaneous
  Country: US (occurrence: None)
  Receive Date: 20130318
  Receipt Date: 20130417
  Transmission Date: 20140414
  Serious: Yes (Other)
  Sender: FDA-Public Use
  Company Number: JPI-P-027797

PATIENT
  Age: 46 Year
  Sex: Female
  Weight: 136.08 kg

DRUGS (14)
  1. XYREM (500 MILLIGRAM/MILLILITERS, SOLUTION) (SODIUM OXYBATE) [Suspect]
     Indication: NARCOLEPSY
     Dosage: 2.25 GM, 2 IN 1 DAY.
     Route: 048
     Dates: start: 20061221
  2. XYREM (500 MILLIGRAM/MILLILITERS, SOLUTION) (SODIUM OXYBATE) [Suspect]
     Indication: SOMNOLENCE
     Dosage: 2.25 GM, 2 IN 1 DAY.
     Route: 048
     Dates: start: 20061221
  3. BREATHING TREATMENTS EVERY MONDAY [Concomitant]
     Indication: DYSPNOEA
  4. ANTIBIOTICS SHOTS IN HIPS EVERY MONDAY [Concomitant]
     Indication: BRONCHITIS
     Dates: start: 201212, end: 20130218
  5. ANTIBIOTICS SHOTS IN HIPS EVERY MONDAY [Concomitant]
     Indication: PNEUMONIA
     Dates: start: 201212, end: 20130218
  6. RITALIN (METHYLPHENIDATE HYDROCHLORIDE) [Concomitant]
  7. FUROSEMIDE [Concomitant]
  8. TORSEMIDE [Concomitant]
  9. INDOMETHACIN [Concomitant]
  10. KLONOPIN (CLONAZEPAM) (TABLETS) [Concomitant]
  11. PREMPRO (CONJUGATED ESTROGEN/MEDROXYPROGESTERONE) [Concomitant]
  12. ALBUTEROL [Concomitant]
  13. AMOXICILLIN [Concomitant]
  14. MOXIFLOXACIN HCL [Concomitant]

REACTIONS (5)
  - Unevaluable event [None]
  - Bronchitis [None]
  - Weight decreased [None]
  - Pneumonia [None]
  - Headache [None]
